FAERS Safety Report 4462151-5 (Version None)
Quarter: 2004Q3

REPORT INFORMATION
  Report Type: 
  Country: None (occurrence: None)
  Receive Date: 20040929
  Receipt Date: 20040922
  Transmission Date: 20050211
  Serious: Yes (Life-Threatening, Hospitalization)
  Sender: FDA-Public Use
  Company Number: US-MERCK-0409USA01918

PATIENT
  Sex: Female

DRUGS (9)
  1. FOSAMAX [Concomitant]
     Route: 065
  2. ECOTRIN [Concomitant]
     Route: 065
  3. PLAVIX [Concomitant]
     Route: 065
  4. PEPCID [Concomitant]
     Route: 065
  5. VIOXX [Suspect]
     Indication: OSTEOARTHRITIS
     Route: 048
  6. VIOXX [Suspect]
     Route: 048
  7. VIOXX [Suspect]
     Indication: HEADACHE
     Route: 048
  8. VIOXX [Suspect]
     Route: 048
  9. ZOCOR [Concomitant]
     Route: 065

REACTIONS (1)
  - CEREBRAL ARTERY THROMBOSIS [None]
